FAERS Safety Report 7405794-9 (Version None)
Quarter: 2011Q2

REPORT INFORMATION
  Report Type: 
  Country: None (occurrence: None)
  Receive Date: 20110411
  Receipt Date: 20110330
  Transmission Date: 20111010
  Serious: Yes (Hospitalization)
  Sender: FDA-Public Use
  Company Number: FR-ROCHE-769264

PATIENT
  Sex: Female

DRUGS (2)
  1. AVASTIN [Suspect]
     Indication: BREAST CANCER
     Dosage: FREQUENCY BY COURSE, LAST DOSE PRIOR TO SAE 10 MARCH 2010
     Route: 042
     Dates: start: 20090904
  2. TAXOTERE [Suspect]
     Indication: BREAST CANCER
     Dosage: FREQUENCY BY COURSE, LAST DOSE PRIOR TO SAE 10 MARCH 2010
     Route: 042
     Dates: start: 20090904

REACTIONS (4)
  - EJECTION FRACTION DECREASED [None]
  - DYSPNOEA [None]
  - ANGINA PECTORIS [None]
  - TACHYCARDIA [None]
